FAERS Safety Report 9784028 (Version 5)
Quarter: 2014Q1

REPORT INFORMATION
  Report Type: Spontaneous
  Country: US (occurrence: US)
  Receive Date: 20131226
  Receipt Date: 20140227
  Transmission Date: 20141002
  Serious: Yes (Hospitalization)
  Sender: FDA-Public Use
  Company Number: US-VERTEX PHARMACEUTICALS INC-2013-012032

PATIENT
  Age: 60 Year
  Sex: Female
  Weight: 75.28 kg

DRUGS (6)
  1. KALYDECO [Suspect]
     Indication: CYSTIC FIBROSIS
     Dosage: 150 MG, TID
     Route: 048
     Dates: start: 20131101
  2. PANCREASE [Concomitant]
     Indication: CYSTIC FIBROSIS
     Dosage: UNK
     Route: 048
  3. VALIUM [Concomitant]
     Dosage: 5 MG, UNK
     Route: 048
  4. SALINE [Concomitant]
     Indication: CYSTIC FIBROSIS
     Dosage: NEBULIZATION
  5. MULTIVITAMINS [Concomitant]
     Indication: CYSTIC FIBROSIS
     Dosage: UNK, QD
  6. PREMARIN [Concomitant]
     Indication: NUTRITIONAL SUPPLEMENTATION
     Dosage: UNK, QD

REACTIONS (7)
  - Cardiac disorder [Unknown]
  - Sinus disorder [Unknown]
  - Epistaxis [Unknown]
  - Product contamination physical [Unknown]
  - Drug dose omission [Not Recovered/Not Resolved]
  - Product size issue [Unknown]
  - Abdominal pain [Unknown]
